FAERS Safety Report 15999597 (Version 3)
Quarter: 2019Q2

REPORT INFORMATION
  Report Type: Spontaneous
  Country: JP (occurrence: JP)
  Receive Date: 20190225
  Receipt Date: 20190401
  Transmission Date: 20190711
  Serious: Yes (Other)
  Sender: FDA-Public Use
  Company Number: JP-PFIZER INC-2019077166

PATIENT
  Age: 51 Year
  Sex: Female

DRUGS (1)
  1. METHYLPREDNISOLONE SODIUM SUCCINATE. [Suspect]
     Active Substance: METHYLPREDNISOLONE SODIUM SUCCINATE
     Indication: NEUROMYELITIS OPTICA SPECTRUM DISORDER
     Dosage: 1000 MG, DAILY FOR 5 CONSECUTIVE DAYS IN TOTAL
     Route: 042

REACTIONS (4)
  - Blood pressure increased [Unknown]
  - Product use in unapproved indication [Unknown]
  - Brain stem haemorrhage [Unknown]
  - Activated partial thromboplastin time shortened [Unknown]
